FAERS Safety Report 14072120 (Version 3)
Quarter: 2018Q3

REPORT INFORMATION
  Report Type: Report from Study
  Country: US (occurrence: US)
  Receive Date: 20171010
  Receipt Date: 20180928
  Transmission Date: 20181010
  Serious: Yes (Other)
  Sender: FDA-Public Use
  Company Number: US-SA-2017SA160482

PATIENT
  Age: 67 Year
  Sex: Female

DRUGS (2)
  1. DUPILUMAB [Suspect]
     Active Substance: DUPILUMAB
     Dosage: 300 MG,QOW
     Route: 058
     Dates: start: 20170627, end: 201808
  2. DUPILUMAB [Suspect]
     Active Substance: DUPILUMAB
     Indication: DERMATITIS ATOPIC
     Dosage: 600 MG,1X
     Route: 058
     Dates: start: 20170613, end: 20170613

REACTIONS (11)
  - Asthenia [Unknown]
  - Fall [Unknown]
  - Loss of personal independence in daily activities [Unknown]
  - Rib fracture [Unknown]
  - Lacrimation increased [Not Recovered/Not Resolved]
  - Influenza [Recovered/Resolved]
  - Osteoarthritis [Not Recovered/Not Resolved]
  - Pruritus [Not Recovered/Not Resolved]
  - Gait disturbance [Unknown]
  - Pneumonia [Not Recovered/Not Resolved]
  - Pharyngitis streptococcal [Not Recovered/Not Resolved]

NARRATIVE: CASE EVENT DATE: 20171128
